FAERS Safety Report 6391163-X (Version None)
Quarter: 2009Q4

REPORT INFORMATION
  Report Type: 
  Country: None (occurrence: None)
  Receive Date: 20091007
  Receipt Date: 20090925
  Transmission Date: 20100525
  Serious: Yes (Other)
  Sender: FDA-Public Use
  Company Number: US-PFIZER INC-2009275623

PATIENT
  Sex: Female
  Weight: 63 kg

DRUGS (4)
  1. PROVERA [Suspect]
     Indication: HORMONE REPLACEMENT THERAPY
     Dosage: UNK
     Route: 048
     Dates: start: 19920501, end: 19960301
  2. PREMARIN [Suspect]
     Indication: HORMONE REPLACEMENT THERAPY
     Dosage: UNK
     Dates: start: 19920501, end: 19960301
  3. PREMPRO [Suspect]
     Indication: HORMONE REPLACEMENT THERAPY
     Dosage: 0.625/2.5MG
     Dates: start: 19960301, end: 20011201
  4. DECONGESTINE [Concomitant]
     Indication: SINUSITIS
     Dosage: UNK
     Dates: start: 19940101

REACTIONS (1)
  - BREAST CANCER FEMALE [None]
